FAERS Safety Report 8845414 (Version 1)
Quarter: 2012Q4

REPORT INFORMATION
  Report Type: Spontaneous
  Country: US (occurrence: None)
  Receive Date: 20121015
  Receipt Date: 20121015
  Transmission Date: 20130627
  Serious: Yes (Hospitalization)
  Sender: FDA-Public Use
  Company Number: 2012250607

PATIENT
  Age: 87 Year
  Sex: Female

DRUGS (2)
  1. FRAGMIN (DALTEPARIN SODIUM) SOLUTION FOR INJECTION [Suspect]
     Dosage: 5000 inj, 1x/day, Subcutaneous
     Route: 058
     Dates: start: 20120929, end: 20121004
  2. HEPARIN SODIUM [Suspect]

REACTIONS (3)
  - Activated partial thromboplastin time prolonged [None]
  - International normalised ratio increased [None]
  - Prothrombin time prolonged [None]
